FAERS Safety Report 19940816 (Version 2)
Quarter: 2021Q4

REPORT INFORMATION
  Report Type: Other
  Country: GB (occurrence: GB)
  Receive Date: 20211012
  Receipt Date: 20211019
  Transmission Date: 20220303
  Serious: Yes (Other)
  Sender: FDA-Public Use
  Company Number: GB-CELLTRION INC.-2021GB013733

PATIENT

DRUGS (7)
  1. INFLIXIMAB [Suspect]
     Active Substance: INFLIXIMAB
     Indication: Colitis ulcerative
     Dosage: NOT KNOWN
     Route: 051
     Dates: start: 20210802, end: 20210816
  2. CALCIUM CARBONATE\CHOLECALCIFEROL [Concomitant]
     Active Substance: CALCIUM CARBONATE\CHOLECALCIFEROL
     Indication: Ill-defined disorder
  3. ASACOL [Concomitant]
     Active Substance: MESALAMINE
     Indication: Ill-defined disorder
  4. AZATHIOPRINE [Concomitant]
     Active Substance: AZATHIOPRINE
     Indication: Ill-defined disorder
  5. BECLOMETHASONE DIPROPIONATE [Concomitant]
     Active Substance: BECLOMETHASONE DIPROPIONATE
     Indication: Ill-defined disorder
  6. PREDNISOLONE [Concomitant]
     Active Substance: PREDNISOLONE
     Indication: Ill-defined disorder
  7. ALBUTEROL [Concomitant]
     Active Substance: ALBUTEROL
     Indication: Ill-defined disorder

REACTIONS (25)
  - Feeling hot [Recovered/Resolved]
  - Taste disorder [Recovering/Resolving]
  - Feeding disorder [Recovered/Resolved]
  - Dry mouth [Recovered/Resolved]
  - Migraine with aura [Not Recovered/Not Resolved]
  - Cold sweat [Recovered/Resolved]
  - Hallucination, visual [Recovered/Resolved]
  - Tongue injury [Recovered/Resolved]
  - Tremor [Recovered/Resolved]
  - Pain in extremity [Recovered/Resolved with Sequelae]
  - Mouth ulceration [Recovered/Resolved]
  - Vision blurred [Recovering/Resolving]
  - Skin discolouration [Recovered/Resolved]
  - Palpitations [Recovering/Resolving]
  - Vomiting [Recovered/Resolved]
  - Nausea [Recovering/Resolving]
  - Chest pain [Recovered/Resolved]
  - Headache [Recovering/Resolving]
  - Back pain [Not Recovered/Not Resolved]
  - Fatigue [Recovering/Resolving]
  - Cough [Not Recovered/Not Resolved]
  - Dyspnoea [Recovering/Resolving]
  - Dizziness [Recovered/Resolved]
  - Confusional state [Recovered/Resolved]
  - Alopecia [Recovering/Resolving]

NARRATIVE: CASE EVENT DATE: 20210802
